FAERS Safety Report 8902534 (Version 2)
Quarter: 2013Q1

REPORT INFORMATION
  Report Type: Report from Study
  Country: PL (occurrence: PL)
  Receive Date: 20121112
  Receipt Date: 20130301
  Transmission Date: 20140127
  Serious: Yes (Other)
  Sender: FDA-Public Use
  Company Number: PL-ROCHE-1153929

PATIENT
  Age: 78 Year
  Sex: Female

DRUGS (15)
  1. RITUXIMAB [Suspect]
     Indication: PRODUCT USED FOR UNKNOWN INDICATION
     Route: 065
     Dates: start: 20110926, end: 20120220
  2. CYCLOPHOSPHAMIDE [Suspect]
     Indication: PRODUCT USED FOR UNKNOWN INDICATION
     Route: 065
     Dates: start: 20110926, end: 20120220
  3. ADRIAMYCIN [Suspect]
     Indication: PRODUCT USED FOR UNKNOWN INDICATION
     Dosage: REDUCED BY 25 PERCENT
     Route: 065
     Dates: start: 20110926, end: 20120220
  4. VINCRISTINE [Suspect]
     Indication: PRODUCT USED FOR UNKNOWN INDICATION
     Route: 065
     Dates: start: 20110926, end: 20120220
  5. PREDNISOLONE [Suspect]
     Indication: PRODUCT USED FOR UNKNOWN INDICATION
     Route: 065
     Dates: start: 20110926, end: 20120220
  6. BEMECOR [Concomitant]
  7. BISOCARD [Concomitant]
  8. CLEXANE [Concomitant]
  9. DIAPREL [Concomitant]
  10. KALIPOZ [Concomitant]
  11. ENARENAL [Concomitant]
  12. METHYLDIGOXIN [Concomitant]
  13. BISOPROLOL [Concomitant]
  14. GLICLAZIDE [Concomitant]
  15. ENOXAPARIN [Concomitant]
     Route: 058

REACTIONS (4)
  - Atrial fibrillation [Unknown]
  - Oedema [Unknown]
  - Disease progression [Unknown]
  - Neutropenia [Recovered/Resolved]
